FAERS Safety Report 15124592 (Version 2)
Quarter: 2019Q1

REPORT INFORMATION
  Report Type: Spontaneous
  Country: US (occurrence: US)
  Receive Date: 20180710
  Receipt Date: 20190226
  Transmission Date: 20190417
  Serious: No
  Sender: FDA-Public Use
  Company Number: US-PFIZER INC-2018273789

PATIENT
  Age: 65 Year
  Sex: Male

DRUGS (1)
  1. FENTANYL CITRATE. [Suspect]
     Active Substance: FENTANYL CITRATE
     Dosage: UNK

REACTIONS (3)
  - Drug hypersensitivity [Unknown]
  - Rash [Unknown]
  - Pruritus [Unknown]
